APPROVED DRUG PRODUCT: MILRINONE LACTATE
Active Ingredient: MILRINONE LACTATE
Strength: EQ 1MG BASE/ML
Dosage Form/Route: INJECTABLE;INJECTION
Application: A075884 | Product #001
Applicant: HOSPIRA WORLDWIDE, INC
Approved: May 28, 2002 | RLD: No | RS: No | Type: DISCN